FAERS Safety Report 10031726 (Version 1)
Quarter: 2014Q1

REPORT INFORMATION
  Report Type: Spontaneous
  Country: US (occurrence: US)
  Receive Date: 20140324
  Receipt Date: 20140324
  Transmission Date: 20141002
  Serious: No
  Sender: FDA-Public Use
  Company Number: US-PFIZER INC-2014083484

PATIENT
  Age: 53 Year
  Sex: Male
  Weight: 65.76 kg

DRUGS (2)
  1. EFFEXOR XR [Suspect]
     Indication: ANXIETY
     Dosage: 150 MG, DAILY
  2. XANAX [Concomitant]
     Indication: ANXIETY
     Dosage: UNK, OCCASIONALLY

REACTIONS (3)
  - Nasopharyngitis [Unknown]
  - Agitation [Unknown]
  - Heart rate increased [Unknown]
